FAERS Safety Report 6410681-9 (Version None)
Quarter: 2009Q4

REPORT INFORMATION
  Report Type: 
  Country: None (occurrence: None)
  Receive Date: 20091022
  Receipt Date: 20091015
  Transmission Date: 20100525
  Serious: Yes (Hospitalization)
  Sender: FDA-Public Use
  Company Number: CA-ASTRAZENECA-2009SE19404

PATIENT
  Age: 70 Year
  Sex: Male

DRUGS (2)
  1. ZOLADEX [Suspect]
     Indication: PROSTATE CANCER
     Route: 058
     Dates: start: 20090820
  2. ZOLADEX [Suspect]
     Route: 058
     Dates: start: 20090915

REACTIONS (2)
  - CARDIAC FAILURE [None]
  - RESPIRATORY DISTRESS [None]
